FAERS Safety Report 6729049-0 (Version None)
Quarter: 2010Q2

REPORT INFORMATION
  Report Type: 
  Country: None (occurrence: None)
  Receive Date: 20100517
  Receipt Date: 20100405
  Transmission Date: 20101027
  Serious: No
  Sender: FDA-Public Use
  Company Number: US-ABBOTT-10P-163-0635988-00

PATIENT
  Age: 32 Year
  Sex: Female
  Weight: 122.58 kg

DRUGS (4)
  1. SIMCOR [Suspect]
     Indication: LOW DENSITY LIPOPROTEIN INCREASED
     Dosage: DAILY DOSE: 500/20 MG AT BED TIME
     Route: 048
     Dates: start: 20090101
  2. M.V.I. [Concomitant]
     Indication: DRUG USE FOR UNKNOWN INDICATION
  3. VITAMIN C [Concomitant]
     Indication: DRUG USE FOR UNKNOWN INDICATION
  4. ASPIRIN [Concomitant]
     Indication: PREMEDICATION
     Dosage: 2-81MG TABLETS BEFORE SIMCOR

REACTIONS (2)
  - FLUSHING [None]
  - SKIN BURNING SENSATION [None]
